FAERS Safety Report 25020017 (Version 1)
Quarter: 2025Q1

REPORT INFORMATION
  Report Type: Spontaneous
  Country: CN (occurrence: None)
  Receive Date: 20250227
  Receipt Date: 20250227
  Transmission Date: 20250409
  Serious: Yes (Death, Hospitalization)
  Sender: INCYTE
  Company Number: CN-002147023-NVSC2025CN030791

PATIENT
  Age: 52 Year

DRUGS (4)
  1. RUXOLITINIB [Suspect]
     Active Substance: RUXOLITINIB
     Indication: Epstein-Barr virus infection
  2. RUXOLITINIB [Suspect]
     Active Substance: RUXOLITINIB
     Indication: Haemophagocytic lymphohistiocytosis
  3. SINTILIMAB [Suspect]
     Active Substance: SINTILIMAB
     Indication: Epstein-Barr virus infection
     Route: 065
  4. SINTILIMAB [Suspect]
     Active Substance: SINTILIMAB
     Indication: Haemophagocytic lymphohistiocytosis

REACTIONS (1)
  - Drug ineffective for unapproved indication [Fatal]
